FAERS Safety Report 10464189 (Version 1)
Quarter: 2014Q3

REPORT INFORMATION
  Report Type: Spontaneous
  Country: CM (occurrence: None)
  Receive Date: 20140917
  Receipt Date: 20140917
  Transmission Date: 20150326
  Serious: Yes (Life-Threatening, Hospitalization)
  Sender: FDA-Public Use
  Company Number: 2014AMD00084

PATIENT
  Age: 5 Year
  Sex: Female

DRUGS (4)
  1. ALBENDAZOLE TABLETS (ALBENDAZOLE) TABLET [Suspect]
     Active Substance: ALBENDAZOLE
     Indication: ONCHOCERCIASIS
     Dosage: 1 TABLET 1XDAY.
     Dates: start: 20140719
  2. IVERMECTIN [Suspect]
     Active Substance: IVERMECTIN
     Indication: ONCHOCERCIASIS
     Dosage: 1 TABLET
     Dates: start: 20140719
  3. IVERMECTIN [Suspect]
     Active Substance: IVERMECTIN
     Indication: FILARIASIS LYMPHATIC
     Dosage: 1 TABLET
     Dates: start: 20140719
  4. ALBENDAZOLE TABLETS (ALBENDAZOLE) TABLET [Suspect]
     Active Substance: ALBENDAZOLE
     Indication: FILARIASIS LYMPHATIC
     Dosage: 1 TABLET 1XDAY.
     Dates: start: 20140719

REACTIONS (4)
  - Asthenia [None]
  - Abasia [None]
  - Oedema peripheral [None]
  - Paresis [None]

NARRATIVE: CASE EVENT DATE: 20140720
